FAERS Safety Report 5833560-4 (Version None)
Quarter: 2008Q3

REPORT INFORMATION
  Report Type: 
  Country: None (occurrence: None)
  Receive Date: 20080804
  Receipt Date: 20080804
  Transmission Date: 20090109
  Serious: No
  Sender: FDA-Public Use
  Company Number: None

PATIENT
  Age: 27 Year
  Sex: Male
  Weight: 77.1115 kg

DRUGS (2)
  1. FLAGYL [Suspect]
     Indication: GIARDIASIS
     Dosage: 21 PILLS @ 250 MG EACH 3 PILLS DAILY PO
     Route: 048
     Dates: start: 19970919, end: 19970925
  2. FLAGYL [Suspect]
     Dosage: 42 PILLS EACH @ 500 MG 3 PILLS DAILY PO
     Route: 048
     Dates: start: 19971006, end: 19971019

REACTIONS (14)
  - ABNORMAL FAECES [None]
  - CLOSTRIDIAL INFECTION [None]
  - DIARRHOEA [None]
  - FAECES HARD [None]
  - GASTROINTESTINAL DISORDER [None]
  - GASTROINTESTINAL INFLAMMATION [None]
  - HAEMATOCHEZIA [None]
  - INFLAMMATORY BOWEL DISEASE [None]
  - JOB DISSATISFACTION [None]
  - MUCOUS STOOLS [None]
  - MUSCLE SPASMS [None]
  - PAINFUL DEFAECATION [None]
  - PYREXIA [None]
  - WEIGHT DECREASED [None]
